FAERS Safety Report 22310352 (Version 1)
Quarter: 2023Q2

REPORT INFORMATION
  Report Type: Spontaneous
  Country: US (occurrence: US)
  Receive Date: 20230511
  Receipt Date: 20230511
  Transmission Date: 20230722
  Serious: Yes (Hospitalization, Other)
  Sender: FDA-Public Use
  Company Number: US-TEVA-2023-US-2884594

PATIENT
  Age: 30 Year
  Sex: Male

DRUGS (16)
  1. METHYLPREDNISOLONE [Suspect]
     Active Substance: METHYLPREDNISOLONE
     Indication: Swelling face
     Route: 065
     Dates: start: 2021
  2. PREDNISONE [Suspect]
     Active Substance: PREDNISONE
     Indication: Swelling face
     Route: 065
     Dates: start: 2021
  3. VALGANCICLOVIR HYDROCHLORIDE [Suspect]
     Active Substance: VALGANCICLOVIR HYDROCHLORIDE
     Indication: Cytomegalovirus viraemia
     Route: 065
     Dates: start: 202107, end: 202107
  4. BICTEGRAVIR [Concomitant]
     Active Substance: BICTEGRAVIR
     Indication: Antiretroviral therapy
     Route: 065
  5. EMTRICITABINE [Concomitant]
     Active Substance: EMTRICITABINE
     Indication: Antiretroviral therapy
     Route: 065
  6. TENOFOVIR ALAFENAMIDE [Concomitant]
     Active Substance: TENOFOVIR ALAFENAMIDE
     Indication: Antiretroviral therapy
     Route: 065
  7. FLUCONAZOLE [Concomitant]
     Active Substance: FLUCONAZOLE
     Indication: Oral candidiasis
     Route: 065
  8. FLUCONAZOLE [Concomitant]
     Active Substance: FLUCONAZOLE
     Indication: Oesophageal candidiasis
  9. FLUCONAZOLE [Concomitant]
     Active Substance: FLUCONAZOLE
     Indication: Oropharyngeal candidiasis
  10. EPINEPHRINE [Concomitant]
     Active Substance: EPINEPHRINE
     Indication: Product used for unknown indication
     Route: 065
  11. DORAVIRINE [Concomitant]
     Active Substance: DORAVIRINE
     Indication: HIV infection
     Route: 065
  12. COBICISTAT\DARUNAVIR ETHANOLATE [Concomitant]
     Active Substance: COBICISTAT\DARUNAVIR ETHANOLATE
     Indication: HIV infection
     Route: 065
  13. VANCOMYCIN [Concomitant]
     Active Substance: VANCOMYCIN
     Indication: Staphylococcal bacteraemia
     Route: 042
  14. PENICILLIN G [Concomitant]
     Active Substance: PENICILLIN G
     Indication: Secondary syphilis
     Route: 065
  15. SULFAMETHOXAZOLE\TRIMETHOPRIM [Concomitant]
     Active Substance: SULFAMETHOXAZOLE\TRIMETHOPRIM
     Indication: Pneumocystis jirovecii pneumonia
     Route: 065
  16. SULFAMETHOXAZOLE\TRIMETHOPRIM [Concomitant]
     Active Substance: SULFAMETHOXAZOLE\TRIMETHOPRIM
     Indication: Prophylaxis

REACTIONS (2)
  - Kaposi^s sarcoma [Unknown]
  - Pancytopenia [Unknown]

NARRATIVE: CASE EVENT DATE: 20210701
